FAERS Safety Report 21694111 (Version 1)
Quarter: 2022Q4

REPORT INFORMATION
  Report Type: Report from Study
  Country: US (occurrence: US)
  Receive Date: 20221207
  Receipt Date: 20221207
  Transmission Date: 20230112
  Serious: Yes (Death)
  Sender: FDA-Public Use
  Company Number: US-UCBSA-2022069360

PATIENT
  Age: 61 Year
  Sex: Male

DRUGS (1)
  1. LACOSAMIDE [Suspect]
     Active Substance: LACOSAMIDE
     Indication: Seizure
     Dosage: 200 MILLIGRAM, TAKE 1 TABLET 2X/DAY (BID)
     Dates: end: 20221015

REACTIONS (1)
  - Death [Fatal]

NARRATIVE: CASE EVENT DATE: 20221015
